FAERS Safety Report 7183060-7 (Version None)
Quarter: 2010Q4

REPORT INFORMATION
  Report Type: 
  Country: None (occurrence: None)
  Receive Date: 20101222
  Receipt Date: 20101213
  Transmission Date: 20110411
  Serious: Yes (Other)
  Sender: FDA-Public Use
  Company Number: US-JNJFOC-20101205339

PATIENT
  Sex: Female
  Weight: 83.46 kg

DRUGS (25)
  1. FENTANYL [Suspect]
     Indication: PAIN
     Route: 062
  2. FENTANYL [Suspect]
     Route: 062
  3. FENTANYL [Suspect]
     Route: 062
  4. FENTANYL [Suspect]
     Route: 062
  5. SANDOZ FENTANYL TRANSDERMAL SYSTEM [Suspect]
     Indication: PAIN
     Dosage: NDC: 0781-7244-55
     Route: 062
  6. UNKNOWN MEDICATION [Concomitant]
     Indication: BREAST CANCER
     Route: 042
  7. HUMULIN 70/30 [Concomitant]
     Indication: DIABETES MELLITUS
     Dosage: 20 UNITS IN THE MORNING, NOON AND BED TIME
     Route: 058
  8. SYNTHROID [Concomitant]
     Indication: HYPOTHYROIDISM
     Route: 048
  9. LIPITOR [Concomitant]
     Indication: BLOOD CHOLESTEROL INCREASED
     Route: 048
  10. ULTRAM [Concomitant]
     Indication: ILL-DEFINED DISORDER
     Route: 048
  11. LEXAPRO [Concomitant]
     Indication: DEPRESSION
     Route: 048
  12. TOPROL-XL [Concomitant]
     Indication: HYPERTENSION
     Route: 048
  13. ASCORBIC ACID [Concomitant]
     Indication: NUTRITIONAL SUPPORT
     Route: 048
  14. CALTRATE PLUS [Concomitant]
     Indication: NUTRITIONAL SUPPORT
     Dosage: DAILY
     Route: 048
  15. ZINC [Concomitant]
     Indication: NUTRITIONAL SUPPORT
     Dosage: DAILY
     Route: 048
  16. CENTRUM SILVER [Concomitant]
     Indication: NUTRITIONAL SUPPORT
     Dosage: DAILY
     Route: 048
  17. PLAQUENIL [Concomitant]
     Indication: ARTHRITIS
     Route: 048
  18. STOOL SOFTENER [Concomitant]
     Indication: ILL-DEFINED DISORDER
     Dosage: DAILY
     Route: 048
  19. FUROSEMIDE [Concomitant]
     Indication: DIURETIC THERAPY
     Route: 048
  20. INDAPAMIDE [Concomitant]
     Indication: HYPERTENSION
     Route: 048
  21. LISINOPRIL [Concomitant]
     Indication: HYPERTENSION
     Route: 048
  22. DIOVAN [Concomitant]
     Indication: HYPERTENSION
     Route: 048
  23. VERAPAMIL [Concomitant]
     Indication: ILL-DEFINED DISORDER
     Route: 048
  24. CLONAZEPAM [Concomitant]
     Indication: MUSCLE RELAXANT THERAPY
     Route: 048
  25. DIAZEPAM [Concomitant]
     Indication: ILL-DEFINED DISORDER
     Route: 048

REACTIONS (12)
  - ABNORMAL SENSATION IN EYE [None]
  - ANKLE FRACTURE [None]
  - BREAST CANCER STAGE IV [None]
  - DRUG INEFFECTIVE [None]
  - DYSPHONIA [None]
  - EAR DISORDER [None]
  - FALL [None]
  - INADEQUATE ANALGESIA [None]
  - PRODUCT ADHESION ISSUE [None]
  - PRODUCT QUALITY ISSUE [None]
  - SENSORY LOSS [None]
  - VISUAL ACUITY REDUCED [None]
